FAERS Safety Report 19685510 (Version 1)
Quarter: 2021Q3

REPORT INFORMATION
  Report Type: Spontaneous
  Country: US (occurrence: US)
  Receive Date: 20210811
  Receipt Date: 20210811
  Transmission Date: 20211014
  Serious: Yes (Other)
  Sender: FDA-Public Use
  Company Number: US-C B FLEET CO INC-202108-US-002621

PATIENT
  Sex: Female

DRUGS (1)
  1. COMPOUND W [Suspect]
     Active Substance: SALICYLIC ACID
     Indication: ACCIDENTAL EXPOSURE TO PRODUCT
     Dosage: DOSAGE UNKNOWN
     Route: 047
     Dates: start: 20210607

REACTIONS (9)
  - Toothache [Unknown]
  - Sinus pain [Unknown]
  - Injury corneal [Recovering/Resolving]
  - Blood pressure increased [Unknown]
  - Accidental exposure to product [None]
  - Eye discharge [Unknown]
  - Pain in jaw [Unknown]
  - Swelling of eyelid [Not Recovered/Not Resolved]
  - Headache [Unknown]
